FAERS Safety Report 20434597 (Version 1)
Quarter: 2022Q1

REPORT INFORMATION
  Report Type: Report from Study
  Country: DO (occurrence: DO)
  Receive Date: 20220206
  Receipt Date: 20220206
  Transmission Date: 20220423
  Serious: Yes (Other)
  Sender: FDA-Public Use
  Company Number: DO-NOVARTISPH-NVSC2022DO024472

PATIENT
  Sex: Female

DRUGS (2)
  1. KISQALI [Suspect]
     Active Substance: RIBOCICLIB
     Indication: Breast cancer
     Dosage: 600 MG, QD
     Route: 048
     Dates: start: 20210419
  2. KISQALI [Suspect]
     Active Substance: RIBOCICLIB
     Dosage: 2 DOSAGE FORM, QD (TWO TABLETS)
     Route: 048

REACTIONS (11)
  - Blindness [Unknown]
  - Dysphagia [Unknown]
  - Weight decreased [Unknown]
  - Skin exfoliation [Unknown]
  - Feeding disorder [Unknown]
  - Food intolerance [Unknown]
  - Glucose tolerance impaired [Unknown]
  - Taste disorder [Unknown]
  - Dizziness [Unknown]
  - Vomiting [Unknown]
  - Nausea [Unknown]
